FAERS Safety Report 14139811 (Version 1)
Quarter: 2017Q4

REPORT INFORMATION
  Report Type: Report from Study
  Country: None (occurrence: CA)
  Receive Date: 20171030
  Receipt Date: 20171030
  Transmission Date: 20180321
  Serious: Yes (Other)
  Sender: FDA-Public Use
  Company Number: CA-ABBVIE-17K-028-2142012-00

PATIENT
  Sex: Male

DRUGS (1)
  1. HUMIRA [Suspect]
     Active Substance: ADALIMUMAB
     Indication: SERONEGATIVE ARTHRITIS
     Route: 058
     Dates: start: 20050423, end: 201702

REACTIONS (5)
  - Fear of injection [Unknown]
  - Mental disorder [Recovering/Resolving]
  - Suicidal ideation [Recovered/Resolved]
  - Depression [Recovering/Resolving]
  - Injection site pain [Unknown]

NARRATIVE: CASE EVENT DATE: 2017
